FAERS Safety Report 5157093-6 (Version None)
Quarter: 2006Q4

REPORT INFORMATION
  Report Type: 
  Country: None (occurrence: None)
  Receive Date: 20061127
  Receipt Date: 20060824
  Transmission Date: 20070319
  Serious: Yes (Death, Hospitalization)
  Sender: FDA-Public Use
  Company Number: US-ELI_LILLY_AND_COMPANY-US200608005640

PATIENT
  Age: 84 Year
  Sex: Male
  Weight: 68.027 kg

DRUGS (2)
  1. ZYPREXA [Suspect]
     Dosage: 2.5 MG, UNK
     Dates: start: 20010101
  2. ZYPREXA [Suspect]
     Dosage: 5 MG, UNK
     Dates: end: 20010101

REACTIONS (6)
  - BLOOD CHOLESTEROL ABNORMAL [None]
  - BLOOD TRIGLYCERIDES INCREASED [None]
  - DEATH [None]
  - DIABETES MELLITUS [None]
  - DYSTONIA [None]
  - METABOLIC DISORDER [None]
